FAERS Safety Report 6921112-4 (Version None)
Quarter: 2010Q3

REPORT INFORMATION
  Report Type: 
  Country: None (occurrence: None)
  Receive Date: 20100812
  Receipt Date: 20100802
  Transmission Date: 20110219
  Serious: Yes (Hospitalization)
  Sender: FDA-Public Use
  Company Number: US-WYE-H16679910

PATIENT
  Sex: Female
  Weight: 49.6 kg

DRUGS (19)
  1. PRISTIQ [Suspect]
     Dosage: UNKNOWN
  2. ACETYLSALICYLIC ACID SRT [Concomitant]
     Dosage: UNKNOWN
  3. LOVENOX [Concomitant]
     Dosage: UNKNOWN
  4. IMDUR [Concomitant]
     Dosage: UNKNOWN
  5. PANTOPRAZOLE [Concomitant]
     Dosage: UNKNOWN
  6. SENNA [Concomitant]
     Dosage: UNKNOWN
  7. ZOCOR [Concomitant]
     Dosage: UNKNOWN
  8. TRAZODONE HCL [Concomitant]
     Dosage: UNKNOWN
  9. COUMADIN [Concomitant]
     Dosage: UNKNOWN
  10. ACETAMINOPHEN [Concomitant]
     Dosage: UNKNOWN
  11. MAALOX [Concomitant]
     Dosage: UNKNOWN
  12. MOTRIN [Concomitant]
     Dosage: UNKNOWN
  13. MILK OF MAGNESIA TAB [Concomitant]
     Dosage: UNKNOWN
  14. NITROGLYCERIN [Concomitant]
     Dosage: UNKNOWN
  15. ZOFRAN [Concomitant]
     Dosage: UNKNOWN
  16. OXYCODONE HCL [Concomitant]
     Dosage: UNKNOWN
  17. SIMETHICONE [Concomitant]
     Dosage: UNKNOWN
  18. AMBIEN [Concomitant]
     Dosage: UNKNOWN
  19. AMLODIPINE [Concomitant]
     Dosage: UNKNOWN

REACTIONS (4)
  - ACUTE CORONARY SYNDROME [None]
  - ELECTROCARDIOGRAM ST SEGMENT ELEVATION [None]
  - TROPONIN INCREASED [None]
  - VASOSPASM [None]
